FAERS Safety Report 8817780 (Version 3)
Quarter: 2012Q4

REPORT INFORMATION
  Report Type: 
  Country: JP (occurrence: JP)
  Receive Date: 20121001
  Receipt Date: 20121213
  Transmission Date: 20130627
  Serious: Yes (Hospitalization, Other)
  Sender: FDA-Public Use
  Company Number: PHHY2012JP084321

PATIENT
  Age: 79 Year
  Sex: Male

DRUGS (15)
  1. RIVASTIGMIN [Suspect]
     Indication: DEMENTIA WITH LEWY BODIES
     Dosage: 4.5 mg, QD
     Route: 062
     Dates: start: 20120715, end: 20120810
  2. RIVASTIGMIN [Suspect]
     Dosage: 9 mg, QD
     Route: 062
     Dates: start: 20120811, end: 20120908
  3. MEMANTINE HYDROCHLORIDE [Concomitant]
  4. PARIET [Concomitant]
  5. PLAVIX [Concomitant]
  6. VESICARE [Concomitant]
  7. FP-OD [Concomitant]
  8. MENESIT [Concomitant]
  9. SYMMETREL [Concomitant]
  10. COMTAN [Concomitant]
  11. SERMION [Concomitant]
  12. MAGMITT [Concomitant]
  13. YOKUKAN-SAN [Concomitant]
  14. GOREI-SAN [Concomitant]
  15. HYDERGINE [Concomitant]

REACTIONS (13)
  - Epilepsy [Recovered/Resolved]
  - Loss of consciousness [Recovered/Resolved]
  - Fall [Unknown]
  - Hypertension [Unknown]
  - Emotional disorder [Unknown]
  - Eating disorder [Unknown]
  - Speech disorder [Unknown]
  - Hyperventilation [Unknown]
  - Tachycardia [Unknown]
  - Insomnia [Unknown]
  - Restlessness [Unknown]
  - Somnolence [Unknown]
  - Agitation [Unknown]
